FAERS Safety Report 19587056 (Version 1)
Quarter: 2021Q3

REPORT INFORMATION
  Report Type: Spontaneous
  Country: US (occurrence: US)
  Receive Date: 20210720
  Receipt Date: 20210720
  Transmission Date: 20211014
  Serious: No
  Sender: FDA-Public Use
  Company Number: None

PATIENT
  Age: 72 Year
  Sex: Male

DRUGS (1)
  1. AMLODIPINE [AMLODIPINE BESYLATE 5MG TAB] [Suspect]
     Active Substance: AMLODIPINE BESYLATE
     Indication: HYPERTENSION
     Dosage: ?          OTHER FREQUENCY:AM;?
     Route: 048
     Dates: start: 20181219, end: 20190206

REACTIONS (1)
  - Nausea [None]

NARRATIVE: CASE EVENT DATE: 20190206
